FAERS Safety Report 17267873 (Version 3)
Quarter: 2020Q1

REPORT INFORMATION
  Report Type: Spontaneous
  Country: US (occurrence: US)
  Receive Date: 20200114
  Receipt Date: 20200226
  Transmission Date: 20200409
  Serious: No
  Sender: FDA-Public Use
  Company Number: US-PFIZER INC-2020017485

PATIENT
  Age: 40 Year
  Sex: Female
  Weight: 48.53 kg

DRUGS (3)
  1. IBRANCE [Suspect]
     Active Substance: PALBOCICLIB
     Dosage: 100 MG, CYCLIC (DAILY FOR 21 DAYS AND THEN OFF 7 DAYS)
     Route: 048
     Dates: start: 20191209
  2. NEULASTA [Concomitant]
     Active Substance: PEGFILGRASTIM
     Dosage: UNK
  3. IBRANCE [Suspect]
     Active Substance: PALBOCICLIB
     Indication: BREAST CANCER
     Dosage: 125 MG, CYCLIC (1 CAP DAILY FOR 21 OUT OF 28 DAYS)
     Route: 048
     Dates: start: 20191209

REACTIONS (5)
  - Radiation injury [Unknown]
  - Procedural complication [Unknown]
  - Neutrophil count decreased [Unknown]
  - Skin reaction [Unknown]
  - Rash macular [Unknown]
